FAERS Safety Report 17210633 (Version 1)
Quarter: 2019Q4

REPORT INFORMATION
  Report Type: Spontaneous
  Country: HR (occurrence: HR)
  Receive Date: 20191227
  Receipt Date: 20191227
  Transmission Date: 20200122
  Serious: Yes (Other)
  Sender: FDA-Public Use
  Company Number: HR-US-PROVELL PHARMACEUTICALS LLC-9137169

PATIENT
  Age: 82 Year
  Sex: Female

DRUGS (3)
  1. TRITACE [Concomitant]
     Active Substance: RAMIPRIL
     Indication: PRODUCT USED FOR UNKNOWN INDICATION
  2. CONTROLOC [Concomitant]
     Active Substance: PANTOPRAZOLE SODIUM
     Indication: PRODUCT USED FOR UNKNOWN INDICATION
  3. EUTHYROX [Suspect]
     Active Substance: LEVOTHYROXINE SODIUM
     Indication: HYPOTHYROIDISM
     Route: 048
     Dates: start: 20191218

REACTIONS (6)
  - Dyspnoea [Unknown]
  - Pruritus [Unknown]
  - Gastric disorder [Unknown]
  - Suffocation feeling [Unknown]
  - Erythema [Unknown]
  - Head discomfort [Unknown]

NARRATIVE: CASE EVENT DATE: 201912
